FAERS Safety Report 17294772 (Version 2)
Quarter: 2020Q1

REPORT INFORMATION
  Report Type: Spontaneous
  Country: US (occurrence: US)
  Receive Date: 20200121
  Receipt Date: 20200214
  Transmission Date: 20200409
  Serious: No
  Sender: FDA-Public Use
  Company Number: US-MYLANLABS-2020M1001928

PATIENT
  Age: 70 Year
  Sex: Male
  Weight: 104 kg

DRUGS (1)
  1. MUSE [Suspect]
     Active Substance: ALPROSTADIL
     Indication: ERECTILE DYSFUNCTION
     Dosage: UNK UNK, PRN (AS NEEDED)
     Route: 066
     Dates: start: 201912

REACTIONS (2)
  - Drug ineffective [Unknown]
  - Penile pain [Recovered/Resolved]

NARRATIVE: CASE EVENT DATE: 201912
